FAERS Safety Report 23263007 (Version 2)
Quarter: 2024Q1

REPORT INFORMATION
  Report Type: Spontaneous
  Country: US (occurrence: US)
  Receive Date: 20231205
  Receipt Date: 20240124
  Transmission Date: 20240410
  Serious: No
  Sender: FDA-Public Use
  Company Number: US-GSKCCFUS-Case-01870765_AE-104463

PATIENT
  Age: 63 Year
  Sex: Male

DRUGS (1)
  1. NUCALA [Suspect]
     Active Substance: MEPOLIZUMAB
     Indication: Asthma
     Dosage: 100 MG
     Dates: start: 20230912, end: 20231010

REACTIONS (6)
  - Rash [Recovering/Resolving]
  - Pruritus [Unknown]
  - Measles [Recovering/Resolving]
  - Hypersensitivity [Unknown]
  - Therapy cessation [Unknown]
  - Product dose omission issue [Unknown]

NARRATIVE: CASE EVENT DATE: 20231010
